FAERS Safety Report 5151139-7 (Version None)
Quarter: 2006Q4

REPORT INFORMATION
  Report Type: 
  Country: None (occurrence: None)
  Receive Date: 20061114
  Receipt Date: 20061114
  Transmission Date: 20070319
  Serious: Yes (Other)
  Sender: FDA-Public Use
  Company Number: None

PATIENT
  Age: 59 Year
  Sex: Male
  Weight: 85.2762 kg

DRUGS (4)
  1. PLAVIX [Suspect]
     Indication: ANTICOAGULANT THERAPY
     Dosage: 1 TAB DAILY PO
     Route: 048
     Dates: start: 20061002, end: 20061017
  2. PLAVIX [Suspect]
     Indication: CORONARY ARTERIAL STENT INSERTION
     Dosage: 1 TAB DAILY PO
     Route: 048
     Dates: start: 20061002, end: 20061017
  3. TICLOPIDINE 250MG TAB TEVA [Suspect]
     Indication: ANTICOAGULANT THERAPY
     Dosage: 1 TAB TWICE DAILY PO
     Route: 048
     Dates: start: 20061107, end: 20061110
  4. TICLOPIDINE 250MG TAB TEVA [Suspect]
     Indication: CORONARY ARTERIAL STENT INSERTION
     Dosage: 1 TAB TWICE DAILY PO
     Route: 048
     Dates: start: 20061107, end: 20061110

REACTIONS (38)
  - ABDOMINAL PAIN [None]
  - ADVERSE DRUG REACTION [None]
  - AURICULAR SWELLING [None]
  - BLOOD PRESSURE ABNORMAL [None]
  - BONE PAIN [None]
  - BRUXISM [None]
  - CHEST PAIN [None]
  - DEPRESSED LEVEL OF CONSCIOUSNESS [None]
  - DYSPHAGIA [None]
  - DYSSTASIA [None]
  - DYSURIA [None]
  - ERYTHEMA [None]
  - EYE SWELLING [None]
  - FAECES PALE [None]
  - FEELING ABNORMAL [None]
  - FEELING HOT [None]
  - FEELING JITTERY [None]
  - GAIT DISTURBANCE [None]
  - HALLUCINATION, AUDITORY [None]
  - HYPERHIDROSIS [None]
  - INCREASED UPPER AIRWAY SECRETION [None]
  - NERVOUSNESS [None]
  - NIGHTMARE [None]
  - OEDEMA PERIPHERAL [None]
  - ORAL INTAKE REDUCED [None]
  - PHARYNGEAL OEDEMA [None]
  - POLLAKIURIA [None]
  - PRURITUS [None]
  - PSYCHOMOTOR HYPERACTIVITY [None]
  - RETCHING [None]
  - SCREAMING [None]
  - SKIN HAEMORRHAGE [None]
  - SLEEP DISORDER [None]
  - STOMACH DISCOMFORT [None]
  - TREMOR [None]
  - URTICARIA [None]
  - VOMITING PROJECTILE [None]
  - WEIGHT INCREASED [None]
